FAERS Safety Report 5034572-3 (Version None)
Quarter: 2006Q2

REPORT INFORMATION
  Report Type: 
  Country: None (occurrence: None)
  Receive Date: 20060621
  Receipt Date: 20060613
  Transmission Date: 20061013
  Serious: Yes (Hospitalization)
  Sender: FDA-Public Use
  Company Number: RS006086-F

PATIENT
  Age: 88 Year
  Sex: Female

DRUGS (2)
  1. RABEPRAZOLE SODIUM [Suspect]
     Dosage: ORAL
     Route: 048
  2. PREVISCAN (FLUINDIONE) [Suspect]
     Dosage: 20 MG
     Dates: end: 20060215

REACTIONS (2)
  - FALL [None]
  - HAEMATOMA [None]
